FAERS Safety Report 9616116 (Version 1)
Quarter: 2013Q4

REPORT INFORMATION
  Report Type: Spontaneous
  Country: GB (occurrence: GB)
  Receive Date: 20131011
  Receipt Date: 20131011
  Transmission Date: 20140711
  Serious: Yes (Hospitalization)
  Sender: FDA-Public Use
  Company Number: GB-TEVA-436610ISR

PATIENT
  Age: 39 Year
  Sex: Female
  Weight: 132.5 kg

DRUGS (2)
  1. QUETIAPINE [Suspect]
     Indication: BIPOLAR DISORDER
     Dosage: 800 MILLIGRAM DAILY; MODIFIED RELEASE
     Route: 048
     Dates: end: 20130909
  2. DEPAKOTE [Suspect]
     Indication: BIPOLAR DISORDER
     Dosage: 1500 MILLIGRAM DAILY;
     Route: 048
     Dates: end: 20130909

REACTIONS (1)
  - Pancytopenia [Not Recovered/Not Resolved]
